FAERS Safety Report 6162572-9 (Version None)
Quarter: 2009Q2

REPORT INFORMATION
  Report Type: 
  Country: None (occurrence: None)
  Receive Date: 20090421
  Receipt Date: 20080321
  Transmission Date: 20091009
  Serious: No
  Sender: FDA-Public Use
  Company Number: US-ASTRAZENECA-2004UW08398

PATIENT
  Sex: Female
  Weight: 56.7 kg

DRUGS (3)
  1. CRESTOR [Suspect]
     Indication: BLOOD CHOLESTEROL INCREASED
     Route: 048
     Dates: start: 20031101
  2. CRESTOR [Suspect]
     Route: 048
     Dates: start: 20031101
  3. ASPIRIN [Concomitant]
     Route: 048

REACTIONS (7)
  - ASTHENIA [None]
  - CONSTIPATION [None]
  - EAR DISORDER [None]
  - FATIGUE [None]
  - MYALGIA [None]
  - PRURITUS [None]
  - RASH [None]
